FAERS Safety Report 7959934-3 (Version None)
Quarter: 2011Q4

REPORT INFORMATION
  Report Type: 
  Country: None (occurrence: None)
  Receive Date: 20111206
  Receipt Date: 20111128
  Transmission Date: 20120403
  Serious: Yes (Hospitalization)
  Sender: FDA-Public Use
  Company Number: FR-MERCK-1102FRA00032

PATIENT
  Age: 22 Year
  Sex: Male

DRUGS (13)
  1. EMEND [Suspect]
     Indication: PROPHYLAXIS OF NAUSEA AND VOMITING
     Route: 048
     Dates: start: 20100111, end: 20100111
  2. EMEND [Suspect]
     Route: 048
     Dates: start: 20100112, end: 20100114
  3. DOXORUBICIN [Concomitant]
     Indication: EWING'S SARCOMA
     Route: 042
     Dates: start: 20100111, end: 20100113
  4. MESNA [Concomitant]
     Route: 065
  5. IFOSFAMIDE [Suspect]
     Route: 042
     Dates: start: 20100111, end: 20100113
  6. ALUMINUM HYDROXIDE AND MAGNESIUM CARBONATE [Concomitant]
     Route: 065
  7. ONDANSETRON [Concomitant]
     Route: 065
  8. METHYLPREDNISOLONE SODIUM SUCCINATE [Concomitant]
     Route: 065
     Dates: start: 20100111, end: 20100113
  9. CLOZAPINE [Concomitant]
     Indication: SCHIZOPHRENIA
     Route: 065
  10. POLYETHYLENE GLYCOL 4000 [Concomitant]
     Route: 065
  11. METOCLOPRAMIDE HYDROCHLORIDE [Concomitant]
     Route: 065
  12. ETOPOSIDE [Concomitant]
     Indication: EWING'S SARCOMA
     Route: 042
     Dates: start: 20100111, end: 20100113
  13. VINCRISTINE SULFATE [Concomitant]
     Route: 042
     Dates: start: 20100111, end: 20100111

REACTIONS (3)
  - DRUG INTERACTION [None]
  - TOXIC ENCEPHALOPATHY [None]
  - CONVULSION [None]
